FAERS Safety Report 9928888 (Version 1)
Quarter: 2014Q1

REPORT INFORMATION
  Report Type: Spontaneous
  Country: GR (occurrence: GR)
  Receive Date: 20140227
  Receipt Date: 20140227
  Transmission Date: 20141002
  Serious: Yes (Death)
  Sender: FDA-Public Use
  Company Number: GR-CELGENEUS-066-21880-14021791

PATIENT
  Sex: Male

DRUGS (3)
  1. REVLIMID [Suspect]
     Indication: PLASMA CELL MYELOMA
     Route: 048
     Dates: start: 20090427
  2. REVLIMID [Suspect]
     Route: 048
     Dates: start: 20090901, end: 201010
  3. REVLIMID [Suspect]
     Route: 048
     Dates: start: 20131218

REACTIONS (1)
  - Death [Fatal]
